FAERS Safety Report 6109138-4 (Version None)
Quarter: 2009Q1

REPORT INFORMATION
  Report Type: 
  Country: None (occurrence: None)
  Receive Date: 20090306
  Receipt Date: 20090217
  Transmission Date: 20090719
  Serious: Yes (Hospitalization)
  Sender: FDA-Public Use
  Company Number: 09P-056-0557686-00

PATIENT
  Age: 9 Month
  Sex: Female

DRUGS (2)
  1. SYNAGIS [Suspect]
     Indication: PROPHYLAXIS
     Dosage: (100 MG,ONCE)  INTRAMUSCULAR
     Route: 030
     Dates: start: 20081218, end: 20081218
  2. SYNAGIS [Suspect]
     Indication: UPPER RESPIRATORY TRACT INFECTION
     Dosage: (100 MG,ONCE)  INTRAMUSCULAR
     Route: 030
     Dates: start: 20081218, end: 20081218

REACTIONS (3)
  - BRONCHIOLITIS [None]
  - DRUG INEFFECTIVE [None]
  - RESPIRATORY SYNCYTIAL VIRUS TEST POSITIVE [None]
